FAERS Safety Report 4533733-7 (Version None)
Quarter: 2004Q4

REPORT INFORMATION
  Report Type: 
  Country: None (occurrence: None)
  Receive Date: 20041221
  Receipt Date: 20041217
  Transmission Date: 20050328
  Serious: Yes (Hospitalization)
  Sender: FDA-Public Use
  Company Number: FR-GLAXOSMITHKLINE-B0362090A

PATIENT
  Age: 67 Year
  Sex: Male

DRUGS (7)
  1. DEROXAT [Suspect]
     Indication: DEPRESSION
     Dosage: 20MG PER DAY
     Route: 048
     Dates: start: 20041005
  2. LEVOTHYROX [Suspect]
     Dosage: 75MCG PER DAY
     Route: 048
  3. NISIS [Suspect]
     Indication: ESSENTIAL HYPERTENSION
     Dosage: 160MG PER DAY
     Route: 048
  4. PEGASYS [Suspect]
     Indication: CHRONIC HEPATITIS
     Dosage: 180MG WEEKLY
     Route: 058
     Dates: start: 20041005
  5. COPEGUS [Suspect]
     Indication: CHRONIC HEPATITIS
     Dosage: 2UNIT TWICE PER DAY
     Route: 048
     Dates: start: 20041005
  6. STILNOX [Suspect]
     Indication: SLEEP DISORDER
     Dosage: 5MG PER DAY
     Route: 048
  7. PLAVIX [Concomitant]
     Dosage: 1UNIT PER DAY

REACTIONS (3)
  - COUGH [None]
  - INTERSTITIAL LUNG DISEASE [None]
  - LUNG DISORDER [None]
